FAERS Safety Report 9511445 (Version 2)
Quarter: 2013Q4

REPORT INFORMATION
  Report Type: Spontaneous
  Country: IT (occurrence: IT)
  Receive Date: 20130910
  Receipt Date: 20131106
  Transmission Date: 20140711
  Serious: Yes (Hospitalization)
  Sender: FDA-Public Use
  Company Number: IT-BRISTOL-MYERS SQUIBB COMPANY-19351121

PATIENT
  Age: 81 Year
  Sex: Male

DRUGS (9)
  1. COUMADIN TABS 5 MG [Suspect]
     Indication: ATRIAL FIBRILLATION
     Dosage: 1DF:1 UNIT
     Route: 048
     Dates: start: 20100101, end: 20130814
  2. AMOXICILLIN [Interacting]
     Indication: PYREXIA
     Dosage: 2DF:2UNIT
     Route: 048
     Dates: start: 20130731, end: 20130814
  3. ENALAPRIL [Concomitant]
     Route: 048
  4. BISOPROLOL HEMIFUMARATE [Concomitant]
     Route: 048
  5. ALLOPURINOL [Concomitant]
  6. DUTASTERIDE [Concomitant]
  7. SILODOSIN [Concomitant]
  8. PANTOPRAZOLE [Concomitant]
  9. ENOXAPARIN [Concomitant]

REACTIONS (2)
  - Hypocoagulable state [Recovered/Resolved]
  - Drug interaction [Unknown]
